FAERS Safety Report 8386250-0 (Version None)
Quarter: 2012Q2

REPORT INFORMATION
  Report Type: 
  Country: None (occurrence: None)
  Receive Date: 20120525
  Receipt Date: 20120522
  Transmission Date: 20120825
  Serious: Yes (Hospitalization, Other)
  Sender: FDA-Public Use
  Company Number: FR-PFIZER INC-2012123129

PATIENT
  Age: 90 Year
  Sex: Male

DRUGS (6)
  1. SINEMET [Concomitant]
     Indication: PARKINSON'S DISEASE
     Dosage: 3 DF, 1X/DAY
     Dates: start: 20100501
  2. LANTUS [Concomitant]
     Indication: DIABETES MELLITUS
     Dosage: UNK
  3. TRIVASTAL [Suspect]
     Dosage: 3 DF, 1X/DAY
     Route: 048
     Dates: start: 20111021, end: 20111103
  4. METFORMIN HYDROCHLORIDE [Concomitant]
     Indication: DIABETES MELLITUS
     Dosage: UNK
  5. FUROSEMIDE [Concomitant]
     Indication: HYPERTENSION
     Dosage: UNK
  6. EFFEXOR XR [Suspect]
     Dosage: 1 DF, 1X/DAY
     Route: 048
     Dates: start: 20111021, end: 20111103

REACTIONS (3)
  - SOMNOLENCE [None]
  - CONFUSIONAL STATE [None]
  - EXTRAPYRAMIDAL DISORDER [None]
